FAERS Safety Report 18460311 (Version 1)
Quarter: 2020Q4

REPORT INFORMATION
  Report Type: Spontaneous
  Country: US (occurrence: US)
  Receive Date: 20201103
  Receipt Date: 20201103
  Transmission Date: 20210114
  Serious: Yes (Other)
  Sender: FDA-Public Use
  Company Number: US-BAXTER-2020BAX021790

PATIENT
  Age: 2 Year
  Sex: Male
  Weight: 12.6 kg

DRUGS (3)
  1. BIVALIRUDIN IN 0.9% SODIUM CHLORIDE INJECTION [Suspect]
     Active Substance: BIVALIRUDIN
     Indication: ANTICOAGULANT THERAPY
     Route: 065
  2. ASPRIN [Suspect]
     Active Substance: ASPIRIN
     Indication: ANTICOAGULANT THERAPY
     Route: 065
  3. COUMADIN [Suspect]
     Active Substance: WARFARIN SODIUM
     Indication: ANTICOAGULANT THERAPY
     Route: 065

REACTIONS (2)
  - Subarachnoid haemorrhage [Recovering/Resolving]
  - Subdural haemorrhage [Recovering/Resolving]
